FAERS Safety Report 9464669 (Version 1)
Quarter: 2013Q3

REPORT INFORMATION
  Report Type: Report from Study
  Country: DE (occurrence: DE)
  Receive Date: 20130819
  Receipt Date: 20130819
  Transmission Date: 20140515
  Serious: No
  Sender: FDA-Public Use
  Company Number: DE-B.I. PHARMACEUTICALS,INC./RIDGEFIELD-2013-BI-24565DE

PATIENT
  Sex: Male

DRUGS (6)
  1. AGGRENOX [Suspect]
     Route: 048
     Dates: start: 20130811
  2. SIMVASTATIN [Suspect]
     Route: 048
  3. PAROXETIN [Suspect]
     Route: 048
  4. BONDIOL [Suspect]
     Route: 048
  5. METOPROLOL [Suspect]
  6. PHOSPHONORM [Suspect]
     Route: 048

REACTIONS (1)
  - Medication error [Unknown]
